FAERS Safety Report 23889040 (Version 2)
Quarter: 2024Q2

REPORT INFORMATION
  Report Type: Report from Study
  Country: US (occurrence: US)
  Receive Date: 20240523
  Receipt Date: 20240607
  Transmission Date: 20240716
  Serious: No
  Sender: FDA-Public Use
  Company Number: US-APELLIS-2024-APL-0000074

PATIENT

DRUGS (7)
  1. EMPAVELI [Suspect]
     Active Substance: PEGCETACOPLAN
     Indication: Paroxysmal nocturnal haemoglobinuria
     Dosage: 1080 MG TWICE WEEKLY
     Route: 058
     Dates: start: 20230317
  2. CALCIUM [Concomitant]
     Active Substance: CALCIUM
  3. CLARITIN [Concomitant]
     Active Substance: LORATADINE
  4. FOLIC ACID [Concomitant]
     Active Substance: FOLIC ACID
  5. PANTOPRAZOLE [Concomitant]
     Active Substance: PANTOPRAZOLE
  6. PREDNISONE [Concomitant]
     Active Substance: PREDNISONE
  7. DEFERIPRONE [Concomitant]
     Active Substance: DEFERIPRONE

REACTIONS (7)
  - Injection site reaction [Not Recovered/Not Resolved]
  - Haemolysis [Not Recovered/Not Resolved]
  - COVID-19 [Not Recovered/Not Resolved]
  - Injection site pruritus [Unknown]
  - Injection site pain [Unknown]
  - Haematuria [Unknown]
  - Fatigue [Unknown]
